FAERS Safety Report 9689436 (Version 1)
Quarter: 2013Q4

REPORT INFORMATION
  Report Type: Other
  Country: BA (occurrence: BA)
  Receive Date: 20131114
  Receipt Date: 20131114
  Transmission Date: 20140711
  Serious: Yes (Hospitalization)
  Sender: FDA-Public Use
  Company Number: BA-RB-060436-13

PATIENT
  Sex: Female

DRUGS (1)
  1. SUBOXONE TABLET [Suspect]
     Indication: DRUG DEPENDENCE
     Dosage: DOSING DETAILS UNKNOWN; ROUTE OF ADMINSITRATION: TRANSSEMINAL
     Route: 050

REACTIONS (2)
  - Exposure via father [Unknown]
  - High risk pregnancy [Unknown]
